FAERS Safety Report 14871288 (Version 1)
Quarter: 2018Q2

REPORT INFORMATION
  Report Type: Other
  Country: US (occurrence: US)
  Receive Date: 20180509
  Receipt Date: 20180509
  Transmission Date: 20180711
  Serious: Yes (Hospitalization)
  Sender: FDA-Public Use
  Company Number: US-ALKERMES INC.-ALK-2018-000141

PATIENT
  Age: 26 Year
  Sex: Female

DRUGS (2)
  1. VIVITROL [Suspect]
     Active Substance: NALTREXONE
     Indication: DRUG DEPENDENCE
     Dosage: 380 MG, QMO
     Route: 030
     Dates: start: 20170321
  2. VIVITROL [Suspect]
     Active Substance: NALTREXONE
     Indication: HEPATITIS C
     Dosage: 380 MG, QD
     Route: 058
     Dates: start: 20170630

REACTIONS (4)
  - Hospitalisation [Unknown]
  - Incorrect route of drug administration [Unknown]
  - Drug dose omission [Unknown]
  - Off label use [Unknown]

NARRATIVE: CASE EVENT DATE: 20170321
